FAERS Safety Report 19965950 (Version 6)
Quarter: 2022Q4

REPORT INFORMATION
  Report Type: Spontaneous
  Country: CO (occurrence: CO)
  Receive Date: 20211019
  Receipt Date: 20221121
  Transmission Date: 20230112
  Serious: Yes (Hospitalization, Other)
  Sender: FDA-Public Use
  Company Number: CO-PFIZER INC-202101339914

PATIENT
  Age: 67 Year
  Sex: Female

DRUGS (1)
  1. ENBREL [Suspect]
     Active Substance: ETANERCEPT
     Indication: Rheumatoid arthritis
     Dosage: 50 MG, WEEKLY (ONE APPLICATION EVERY 8 DAYS)
     Route: 058
     Dates: start: 2002

REACTIONS (21)
  - Rheumatoid arthritis [Unknown]
  - Intervertebral disc protrusion [Not Recovered/Not Resolved]
  - Illness [Unknown]
  - Pain in extremity [Not Recovered/Not Resolved]
  - Neck pain [Not Recovered/Not Resolved]
  - Back pain [Not Recovered/Not Resolved]
  - Musculoskeletal stiffness [Not Recovered/Not Resolved]
  - Gait disturbance [Not Recovered/Not Resolved]
  - Memory impairment [Not Recovered/Not Resolved]
  - Chills [Unknown]
  - Blood pressure decreased [Not Recovered/Not Resolved]
  - Pain [Unknown]
  - Blood glucose decreased [Unknown]
  - Pallor [Unknown]
  - COVID-19 [Unknown]
  - Sensitivity to weather change [Unknown]
  - Influenza [Unknown]
  - Muscular weakness [Unknown]
  - Hypertension [Unknown]
  - Inappropriate schedule of product administration [Unknown]
  - Circumstance or information capable of leading to medication error [Unknown]

NARRATIVE: CASE EVENT DATE: 20200101
